FAERS Safety Report 7984064-4 (Version None)
Quarter: 2011Q4

REPORT INFORMATION
  Report Type: 
  Country: None (occurrence: None)
  Receive Date: 20111216
  Receipt Date: 20111207
  Transmission Date: 20120403
  Serious: Yes (Hospitalization, Other)
  Sender: FDA-Public Use
  Company Number: SE-PFIZER INC-2011052594

PATIENT
  Age: 74 Year
  Sex: Male

DRUGS (14)
  1. BEHEPAN [Concomitant]
     Dosage: UNK
  2. NITROMEX [Concomitant]
     Dosage: UNK
  3. SERENOA REPENS [Concomitant]
     Dosage: UNK
  4. RAMIPRIL [Suspect]
     Dosage: 10 MG, UNK
     Route: 048
     Dates: end: 20100711
  5. SIMVASTATIN [Concomitant]
     Dosage: UNK
  6. DOXAZOSIN MESYLATE [Concomitant]
     Dosage: UNK
     Dates: start: 20100601
  7. AMIODARONE HCL [Suspect]
     Indication: VENTRICULAR ARRHYTHMIA
     Dosage: 600 MG DAILY FOR TEN DAYS, THEN 200 MG DAILY
     Route: 048
     Dates: start: 20091208, end: 20091217
  8. PROSCAR [Concomitant]
     Dosage: UNK
     Dates: start: 20100111
  9. LEVOTHYROXINE SODIUM [Concomitant]
     Dosage: UNK
     Dates: start: 20100501
  10. FUROSEMIDE [Suspect]
     Dosage: 40 MG, UNK
     Dates: end: 20100713
  11. METFORMIN [Concomitant]
     Dosage: UNK
     Dates: end: 20100712
  12. WARFARIN SODIUM [Concomitant]
     Dosage: UNK
  13. BISOPROLOL [Concomitant]
     Dosage: UNK
  14. IMDUR [Concomitant]
     Dosage: UNK

REACTIONS (2)
  - VENTRICULAR TACHYCARDIA [None]
  - RENAL FAILURE ACUTE [None]
